FAERS Safety Report 18985006 (Version 1)
Quarter: 2021Q1

REPORT INFORMATION
  Report Type: Report from Study
  Country: GB (occurrence: GB)
  Receive Date: 20210309
  Receipt Date: 20210309
  Transmission Date: 20210420
  Serious: Yes (Other)
  Sender: FDA-Public Use
  Company Number: GB-ACCORD-218862

PATIENT
  Age: 52 Year
  Sex: Female

DRUGS (32)
  1. BUDESONIDE/FORMOTEROL FUMARATE [Concomitant]
     Active Substance: BUDESONIDE\FORMOTEROL FUMARATE
     Route: 055
     Dates: start: 20190720
  2. CARBOMER [Concomitant]
     Active Substance: CARBOMER
     Dosage: AS NEEDED
     Route: 047
     Dates: start: 20160706
  3. OMEPRAZOLE. [Concomitant]
     Active Substance: OMEPRAZOLE
     Route: 048
     Dates: start: 20160212
  4. CHLORPHENAMINE MALEATE/CHLORPHENIRAMINE MALEATE [Concomitant]
     Dosage: 4?6 HOURLY
     Route: 048
     Dates: start: 20190502, end: 20190515
  5. LETROZOLE. [Suspect]
     Active Substance: LETROZOLE
     Indication: PRODUCT USED FOR UNKNOWN INDICATION
     Route: 048
     Dates: start: 20160407
  6. HYPROMELLOSE/HYPROMELLOSE PHTHALATE [Concomitant]
     Route: 065
     Dates: start: 20160831
  7. PIRITON [Concomitant]
     Active Substance: CHLORPHENIRAMINE MALEATE
     Route: 048
     Dates: start: 20170503, end: 20170503
  8. OENOTHERA BIENNIS [Concomitant]
     Active Substance: OENOTHERA BIENNIS
     Route: 048
     Dates: start: 2017
  9. EUCALYPTUS GLOBULUS [Concomitant]
     Active Substance: EUCALYPTUS GLOBULUS LEAF
     Route: 061
     Dates: start: 20191219, end: 20191219
  10. EUMOVATE [Concomitant]
     Active Substance: CLOBETASONE BUTYRATE
     Dosage: AS NEEDED
     Route: 061
     Dates: start: 201904, end: 20190502
  11. PARACETAMOL [Concomitant]
     Active Substance: ACETAMINOPHEN
     Dosage: AS NEEDED
     Route: 048
     Dates: start: 2017
  12. SYSTANE (HYPROMELLOSE 2910 (4000 MPA.S)) [Concomitant]
     Active Substance: HYPROMELLOSE 2910 (4000 MPA.S)
     Dosage: AS NEEDED
     Route: 047
  13. CLOBETASONE/CLOBETASONE BUTYRATE [Concomitant]
     Route: 061
  14. CETIRIZINE [Concomitant]
     Active Substance: CETIRIZINE HYDROCHLORIDE
     Dosage: DAILY AS NEEDED
     Route: 048
     Dates: start: 20170911
  15. CODEINE PHOSPHATE/PARACETAMOL [Concomitant]
     Active Substance: ACETAMINOPHEN\CODEINE PHOSPHATE
     Dosage: AS NEEDED
     Route: 048
     Dates: start: 20190719
  16. PACLITAXEL/PACLITAXEL LIPOSOME [Suspect]
     Active Substance: PACLITAXEL
     Indication: PRODUCT USED FOR UNKNOWN INDICATION
     Route: 042
     Dates: start: 20160311, end: 20160324
  17. TRASTUZUMAB. [Suspect]
     Active Substance: TRASTUZUMAB
     Indication: BREAST CANCER METASTATIC
     Route: 058
     Dates: start: 20151231
  18. ESTRIOL [Concomitant]
     Active Substance: ESTRIOL
     Dosage: 0.1% CREAM AS NEEDED.?2?3 WEEKS
     Route: 067
     Dates: start: 20150415
  19. LOPERAMIDE [Concomitant]
     Active Substance: LOPERAMIDE
     Indication: DIARRHOEA
     Dosage: 1 CAPSULE AS NEEDED.
     Route: 048
     Dates: start: 20150415
  20. DEXAMETHASONE SODIUM PHOSPHATE. [Concomitant]
     Active Substance: DEXAMETHASONE SODIUM PHOSPHATE
     Route: 047
     Dates: start: 20191119, end: 20191126
  21. MELALEUCA ALTERNIFOLIA [Concomitant]
     Active Substance: TEA TREE OIL
     Dosage: AS NEEDED
     Route: 047
     Dates: start: 20191029, end: 20191031
  22. ACICLOVIR [Concomitant]
     Active Substance: ACYCLOVIR
     Route: 048
     Dates: start: 20190606, end: 20190627
  23. DEXAFREE [Concomitant]
     Active Substance: DEXAMETHASONE SODIUM PHOSPHATE
     Route: 047
     Dates: start: 20191127
  24. EURAX [Concomitant]
     Active Substance: CROTAMITON
     Dosage: AS NEEDED
     Route: 061
     Dates: start: 20190516, end: 201906
  25. FEXOFENADINE [Concomitant]
     Active Substance: FEXOFENADINE HYDROCHLORIDE
     Dosage: AS NEEDED
     Route: 048
     Dates: start: 20190516
  26. CHLORPHENAMINE MALEATE/CHLORPHENIRAMINE MALEATE [Concomitant]
     Route: 048
     Dates: start: 201904, end: 20190502
  27. DOCETAXEL. [Suspect]
     Active Substance: DOCETAXEL
     Indication: PRODUCT USED FOR UNKNOWN INDICATION
     Route: 042
     Dates: start: 20151231, end: 20160212
  28. SALBUTAMOL [Concomitant]
     Active Substance: ALBUTEROL
     Dosage: 2 PUFF AS NEEDED.
     Route: 065
     Dates: start: 20000418
  29. MOMETASONE [Concomitant]
     Active Substance: MOMETASONE
     Dosage: 2 PUFF QD.
     Route: 065
     Dates: start: 20120925
  30. PARAFFIN SOFT [Concomitant]
     Active Substance: PARAFFIN
     Dosage: AS NEEDED
     Route: 061
     Dates: start: 20180403
  31. MENTHA X PIPERITA [Concomitant]
     Active Substance: HERBALS
     Route: 061
     Dates: start: 20191219, end: 20191219
  32. BUDESONIDE/FORMOTEROL FUMARATE [Concomitant]
     Active Substance: BUDESONIDE\FORMOTEROL FUMARATE
     Dosage: 1 PUFF AS NEEDED
     Route: 055
     Dates: start: 20151115

REACTIONS (9)
  - Skin ulcer [Recovered/Resolved]
  - Fatigue [Recovered/Resolved]
  - Mass [Recovered/Resolved]
  - Neuropathy peripheral [Recovered/Resolved]
  - Pain [Recovered/Resolved]
  - Abdominal pain [Recovered/Resolved]
  - Alopecia [Recovered/Resolved]
  - Extravasation [Recovered/Resolved]
  - Nail disorder [Unknown]

NARRATIVE: CASE EVENT DATE: 20160211
